FAERS Safety Report 4341153-3 (Version None)
Quarter: 2004Q2

REPORT INFORMATION
  Report Type: 
  Country: None (occurrence: None)
  Receive Date: 20040419
  Receipt Date: 20040318
  Transmission Date: 20050107
  Serious: Yes (Other)
  Sender: FDA-Public Use
  Company Number: JP-GLAXOSMITHKLINE-B0327858A

PATIENT
  Age: 3 Year
  Sex: Female
  Weight: 19 kg

DRUGS (3)
  1. ALKERAN [Suspect]
     Indication: STEM CELL TRANSPLANT
     Dosage: 60MGM2 PER DAY
     Route: 042
     Dates: start: 19930129, end: 19930131
  2. ETOPOSIDE [Concomitant]
     Indication: STEM CELL TRANSPLANT
     Dosage: 500MGM2 PER DAY
     Route: 042
     Dates: start: 19930126, end: 19930127
  3. CISPLATIN [Concomitant]
     Indication: STEM CELL TRANSPLANT
     Dosage: 800MGM2 PER DAY
     Route: 042
     Dates: start: 19930125, end: 19930125

REACTIONS (2)
  - BODY HEIGHT BELOW NORMAL [None]
  - HYPOTHYROIDISM [None]
